FAERS Safety Report 18416429 (Version 2)
Quarter: 2020Q4

REPORT INFORMATION
  Report Type: Spontaneous
  Country: CH (occurrence: CH)
  Receive Date: 20201022
  Receipt Date: 20201027
  Transmission Date: 20210114
  Serious: Yes (Life-Threatening, Hospitalization, Disabling, Other)
  Sender: FDA-Public Use
  Company Number: CH-EMD SERONO-E2B_90080827

PATIENT
  Age: 11 Year
  Sex: Male

DRUGS (2)
  1. SAIZEN [Suspect]
     Active Substance: SOMATROPIN
     Indication: DWARFISM
  2. SAIZEN [Suspect]
     Active Substance: SOMATROPIN
     Indication: CONGENITAL GROWTH HORMONE DEFICIENCY
     Route: 058
     Dates: start: 20131114, end: 20140214

REACTIONS (1)
  - T-cell type acute leukaemia [Not Recovered/Not Resolved]

NARRATIVE: CASE EVENT DATE: 20200611
